FAERS Safety Report 7600553-6 (Version None)
Quarter: 2011Q3

REPORT INFORMATION
  Report Type: 
  Country: None (occurrence: None)
  Receive Date: 20110711
  Receipt Date: 20110628
  Transmission Date: 20111222
  Serious: Yes (Hospitalization)
  Sender: FDA-Public Use
  Company Number: FR-ROCHE-784112

PATIENT
  Sex: Male
  Weight: 80 kg

DRUGS (9)
  1. MYCOPHENOLATE MEFETIL [Suspect]
     Indication: RENAL TRANSPLANT
     Route: 048
     Dates: start: 20110518
  2. CERTICAN [Suspect]
     Indication: RENAL TRANSPLANT
     Dosage: DOSE REDUCED:ON 7 JUNE 2011,DOSE: 3.5, LAST DOSE  PRIOR TO SAE: 8 JUN 2011
     Route: 048
     Dates: start: 20110522, end: 20110608
  3. PROGRAF [Concomitant]
     Dates: start: 20110609
  4. PREDNISOLONE [Suspect]
     Indication: RENAL TRANSPLANT
     Route: 048
     Dates: start: 20110519
  5. LASIX [Concomitant]
     Dates: start: 20110611
  6. VALACYCLOVIR [Concomitant]
     Dates: start: 20110519
  7. MYCOPHENOLATE MEFETIL [Suspect]
     Dosage: DOSE REDUCED
     Route: 048
     Dates: start: 20110615
  8. MYCOPHENOLATE MEFETIL [Suspect]
     Route: 048
     Dates: start: 20110528, end: 20110615
  9. TENORMIN [Concomitant]
     Dates: start: 20110606

REACTIONS (5)
  - NEUTROPENIA [None]
  - LYMPHATIC DISORDER [None]
  - RENAL IMPAIRMENT [None]
  - SCAR [None]
  - SCAR PAIN [None]
